FAERS Safety Report 10477637 (Version 1)
Quarter: 2014Q3

REPORT INFORMATION
  Report Type: Spontaneous
  Country: SA (occurrence: None)
  Receive Date: 20140924
  Receipt Date: 20140924
  Transmission Date: 20150326
  Serious: Yes (Death)
  Sender: FDA-Public Use
  Company Number: 2534467

PATIENT
  Age: 45 Year
  Sex: Female

DRUGS (3)
  1. PHENYTOIN. [Suspect]
     Active Substance: PHENYTOIN
     Indication: PARTIAL SEIZURES
  2. DEXAMETHASONE. [Suspect]
     Active Substance: DEXAMETHASONE
  3. RANITIDINE [Concomitant]
     Active Substance: RANITIDINE\RANITIDINE HYDROCHLORIDE

REACTIONS (9)
  - Haemodynamic instability [None]
  - Dysphagia [None]
  - Blood glucose increased [None]
  - Photophobia [None]
  - Visual impairment [None]
  - Blood culture positive [None]
  - Staphylococcal infection [None]
  - Toxic epidermal necrolysis [None]
  - Oropharyngeal pain [None]
